FAERS Safety Report 7032749-9 (Version None)
Quarter: 2010Q4

REPORT INFORMATION
  Report Type: 
  Country: None (occurrence: None)
  Receive Date: 20101007
  Receipt Date: 20101005
  Transmission Date: 20110411
  Serious: Yes (Other)
  Sender: FDA-Public Use
  Company Number: US-PFIZER INC-2010126790

PATIENT
  Age: 84 Year
  Sex: Female

DRUGS (1)
  1. TIKOSYN [Suspect]

REACTIONS (1)
  - HEART RATE INCREASED [None]
